FAERS Safety Report 13425224 (Version 1)
Quarter: 2017Q2

REPORT INFORMATION
  Report Type: Report from Study
  Country: IE (occurrence: IE)
  Receive Date: 20170411
  Receipt Date: 20170411
  Transmission Date: 20170830
  Serious: Yes (Other)
  Sender: FDA-Public Use
  Company Number: IE-CIPLA LTD.-2017IE06611

PATIENT

DRUGS (3)
  1. D-CHIRO INOSITOL [Suspect]
     Active Substance: CHIRO-INOSITOL, (+)-
     Indication: PROPHYLAXIS
     Dosage: 27.6 G, UNK
     Route: 065
  2. MYO-INOSITOL [Suspect]
     Active Substance: INOSITOL
     Indication: PROPHYLAXIS
     Dosage: 1100 MG, UNK
     Route: 065
  3. FOLIC ACID. [Suspect]
     Active Substance: FOLIC ACID
     Dosage: 400 MCG, UNK
     Route: 065

REACTIONS (2)
  - Exposure during pregnancy [Unknown]
  - Gestational diabetes [Unknown]
